FAERS Safety Report 18024134 (Version 1)
Quarter: 2020Q3

REPORT INFORMATION
  Report Type: Report from Study
  Country: US (occurrence: US)
  Receive Date: 20200714
  Receipt Date: 20200714
  Transmission Date: 20201103
  Serious: Yes (Hospitalization)
  Sender: FDA-Public Use
  Company Number: US-ACTELION-A-US2020-204659

PATIENT
  Age: 26 Year
  Sex: Female

DRUGS (3)
  1. REMODULIN [Concomitant]
     Active Substance: TREPROSTINIL
  2. OPSUMIT [Suspect]
     Active Substance: MACITENTAN
     Indication: PULMONARY ARTERIAL HYPERTENSION
     Dosage: 10 MG, QD
     Route: 048
     Dates: start: 20191120
  3. OXYGEN. [Concomitant]
     Active Substance: OXYGEN
     Dosage: 2 L

REACTIONS (15)
  - Therapy change [Unknown]
  - Chills [Recovered/Resolved]
  - Unevaluable event [Recovering/Resolving]
  - Catheter placement [Recovered/Resolved]
  - Catheter site erythema [Recovered/Resolved]
  - Respiratory failure [Unknown]
  - Cough [Recovering/Resolving]
  - Dyspnoea [Recovering/Resolving]
  - Catheter removal [Recovered/Resolved]
  - Nausea [Recovered/Resolved]
  - Blood culture positive [Recovered/Resolved]
  - Pyrexia [Recovered/Resolved]
  - Device related infection [Unknown]
  - Catheter site cellulitis [Recovered/Resolved]
  - Vomiting [Recovered/Resolved]

NARRATIVE: CASE EVENT DATE: 20200326
